FAERS Safety Report 15823138 (Version 1)
Quarter: 2019Q1

REPORT INFORMATION
  Report Type: Report from Study
  Country: US (occurrence: US)
  Receive Date: 20190114
  Receipt Date: 20190114
  Transmission Date: 20190417
  Serious: No
  Sender: FDA-Public Use
  Company Number: PHEH2019US001296

PATIENT
  Sex: Female

DRUGS (1)
  1. ENTRESTO [Suspect]
     Active Substance: SACUBITRIL\VALSARTAN
     Indication: CARDIAC FAILURE CHRONIC
     Dosage: 50 MG (24/26 MG SACUBITRIL/VALSARTAN), BID
     Route: 048
     Dates: end: 20190107

REACTIONS (7)
  - Nervousness [Unknown]
  - Diarrhoea [Unknown]
  - Insomnia [Unknown]
  - Tremor [Unknown]
  - Dizziness [Unknown]
  - Aphthous ulcer [Unknown]
  - Decreased appetite [Unknown]
